FAERS Safety Report 17035678 (Version 1)
Quarter: 2019Q4

REPORT INFORMATION
  Report Type: Not Available
  Country: US (occurrence: US)
  Receive Date: 20191115
  Receipt Date: 20191115
  Transmission Date: 20200122
  Serious: No
  Sender: FDA-Public Use
  Company Number: US-NEUROCRINE BIOSCIENCES INC.-2019NBI03359

PATIENT
  Age: 70 Year
  Sex: Female

DRUGS (17)
  1. BELSOMRA [Concomitant]
     Active Substance: SUVOREXANT
  2. BENICAR [Concomitant]
     Active Substance: OLMESARTAN MEDOXOMIL
  3. KLONOPIN [Concomitant]
     Active Substance: CLONAZEPAM
  4. ESTROGEN [Concomitant]
     Active Substance: ESTROGENS
  5. DICYCLOMINE [Concomitant]
     Active Substance: DICYCLOMINE HYDROCHLORIDE
  6. CALCIUM [Concomitant]
     Active Substance: CALCIUM
  7. RITALIN [Concomitant]
     Active Substance: METHYLPHENIDATE HYDROCHLORIDE
  8. LAMICTAL [Concomitant]
     Active Substance: LAMOTRIGINE
  9. MELATONIN [Concomitant]
     Active Substance: MELATONIN
  10. PROPRANOLOL [Concomitant]
     Active Substance: PROPRANOLOL HYDROCHLORIDE
  11. INGREZZA [Suspect]
     Active Substance: VALBENAZINE
     Indication: TARDIVE DYSKINESIA
     Route: 048
     Dates: start: 20180525
  12. THYROID [Concomitant]
     Active Substance: LEVOTHYROXINE\LIOTHYRONINE
  13. MAGNESIUM [Concomitant]
     Active Substance: MAGNESIUM
  14. FLONASE [Concomitant]
     Active Substance: FLUTICASONE PROPIONATE
  15. PROGESTERONE. [Concomitant]
     Active Substance: PROGESTERONE
  16. ESTRADIOL. [Concomitant]
     Active Substance: ESTRADIOL
  17. LEXAPRO [Concomitant]
     Active Substance: ESCITALOPRAM OXALATE

REACTIONS (2)
  - Blood pressure systolic increased [Not Recovered/Not Resolved]
  - Headache [Not Recovered/Not Resolved]

NARRATIVE: CASE EVENT DATE: 20191029
